FAERS Safety Report 9197522 (Version 1)
Quarter: 2013Q1

REPORT INFORMATION
  Report Type: Report from Study
  Country: JP (occurrence: JP)
  Receive Date: 20130328
  Receipt Date: 20130328
  Transmission Date: 20140127
  Serious: Yes (Other)
  Sender: FDA-Public Use
  Company Number: JP-GLAXOSMITHKLINE-B0871563A

PATIENT
  Age: 71 Year
  Sex: Female
  Weight: 44 kg

DRUGS (8)
  1. REVOLADE [Suspect]
     Indication: IDIOPATHIC THROMBOCYTOPENIC PURPURA
     Route: 048
     Dates: start: 20120628, end: 20120725
  2. REVOLADE [Suspect]
     Indication: IDIOPATHIC THROMBOCYTOPENIC PURPURA
     Route: 048
     Dates: start: 20120726
  3. PREDONINE [Suspect]
     Indication: IDIOPATHIC THROMBOCYTOPENIC PURPURA
     Route: 048
  4. CINAL [Concomitant]
     Indication: IDIOPATHIC THROMBOCYTOPENIC PURPURA
     Route: 048
  5. DEPAS [Concomitant]
     Route: 048
  6. MUCOSTA [Concomitant]
     Indication: GASTRITIS PROPHYLAXIS
     Route: 048
  7. GLAKAY [Concomitant]
     Route: 048
  8. EDIROL [Concomitant]
     Route: 048

REACTIONS (2)
  - Diarrhoea [Recovering/Resolving]
  - Cellulitis [Recovered/Resolved]
